FAERS Safety Report 9126011 (Version 1)
Quarter: 2013Q1

REPORT INFORMATION
  Report Type: Spontaneous
  Country: IN (occurrence: IN)
  Receive Date: 20130228
  Receipt Date: 20130228
  Transmission Date: 20140127
  Serious: Yes (Hospitalization)
  Sender: FDA-Public Use
  Company Number: IN-PAR PHARMACEUTICAL, INC-2013SCPR005783

PATIENT
  Sex: 0

DRUGS (1)
  1. OLANZAPINE [Suspect]
     Indication: SCHIZOPHRENIA, PARANOID TYPE
     Dosage: UNK, UNKNOWN
     Route: 065

REACTIONS (2)
  - Camptocormia [Recovered/Resolved]
  - Muscle necrosis [Recovered/Resolved]
